FAERS Safety Report 7462403-0 (Version None)
Quarter: 2011Q2

REPORT INFORMATION
  Report Type: 
  Country: None (occurrence: None)
  Receive Date: 20110506
  Receipt Date: 20110427
  Transmission Date: 20111010
  Serious: Yes (Hospitalization)
  Sender: FDA-Public Use
  Company Number: FR-MILLENNIUM PHARMACEUTICALS, INC.-2011-01800

PATIENT

DRUGS (9)
  1. LASIX [Concomitant]
     Dosage: 40 MG, UNK
     Route: 048
  2. DIFFU K [Concomitant]
  3. PANTOPRAZOLE SODIUM [Concomitant]
  4. ALDACTONE [Concomitant]
  5. HEMIGOXINE NATIVELLE [Concomitant]
  6. VELCADE [Suspect]
     Indication: MULTIPLE MYELOMA
     Dosage: 1 MG/M2, 1/WEEK
     Route: 042
     Dates: start: 20100920
  7. LEVOTHYROX [Concomitant]
     Dosage: 100 UG, UNK
     Route: 048
  8. KARDEGIC                           /00002703/ [Concomitant]
     Dosage: 75 MG, UNK
     Route: 048
  9. SPECIAFOLDINE [Concomitant]
     Dosage: UNK

REACTIONS (1)
  - THROMBOPHLEBITIS SUPERFICIAL [None]
